FAERS Safety Report 23057198 (Version 2)
Quarter: 2023Q4

REPORT INFORMATION
  Report Type: Spontaneous
  Country: AR (occurrence: AR)
  Receive Date: 20231012
  Receipt Date: 20231206
  Transmission Date: 20240110
  Serious: Yes (Other)
  Sender: FDA-Public Use
  Company Number: AR-002147023-NVSC2022AR192625

PATIENT
  Age: 67 Year
  Sex: Female

DRUGS (4)
  1. HYRIMOZ [Suspect]
     Active Substance: ADALIMUMAB-ADAZ
     Indication: Rheumatoid arthritis
     Dosage: 40 MG, BIW (ONCE EVERY 2 WEEKS)
     Route: 058
     Dates: start: 20220803
  2. HYRIMOZ [Suspect]
     Active Substance: ADALIMUMAB-ADAZ
     Dosage: 80 MG, BIW (ONCE EVERY 2 WEEKS)
     Route: 058
     Dates: start: 20220803
  3. HYRIMOZ [Suspect]
     Active Substance: ADALIMUMAB-ADAZ
     Dosage: 40 MG, QW
     Route: 058
  4. HYRIMOZ [Suspect]
     Active Substance: ADALIMUMAB-ADAZ
     Dosage: 40 MG, BIW (40MG/0.8ML) (TWICE A MONTH EVERY 15 DAYS) (SHE DOUBTS IF IT WAS IN ??-OCT-2022 OR ??-SEP
     Route: 058

REACTIONS (22)
  - Pulmonary congestion [Unknown]
  - Arthralgia [Unknown]
  - Musculoskeletal stiffness [Not Recovered/Not Resolved]
  - Joint swelling [Unknown]
  - Mobility decreased [Unknown]
  - Discomfort [Unknown]
  - Ingrowing nail [Unknown]
  - Haematocrit increased [Unknown]
  - Pain in extremity [Not Recovered/Not Resolved]
  - Limb discomfort [Unknown]
  - Foot deformity [Not Recovered/Not Resolved]
  - Skin exfoliation [Unknown]
  - Dermatitis allergic [Unknown]
  - Hypoaesthesia [Unknown]
  - Hepatic enzyme increased [Unknown]
  - Injection site haemorrhage [Unknown]
  - Injection site papule [Unknown]
  - Injection site pain [Unknown]
  - Malaise [Unknown]
  - Pulmonary mass [Unknown]
  - Incorrect dose administered by device [Unknown]
  - Device issue [Unknown]

NARRATIVE: CASE EVENT DATE: 20220901
